FAERS Safety Report 6404038-4 (Version None)
Quarter: 2009Q4

REPORT INFORMATION
  Report Type: 
  Country: None (occurrence: None)
  Receive Date: 20091016
  Receipt Date: 20090811
  Transmission Date: 20100525
  Serious: No
  Sender: FDA-Public Use
  Company Number: US-ALEXION-A200900651

PATIENT
  Sex: Male

DRUGS (22)
  1. SOLIRIS [Suspect]
     Indication: PAROXYSMAL NOCTURNAL HAEMOGLOBINURIA
     Dosage: 600 MG, QW
     Route: 042
     Dates: start: 20070502, end: 20070523
  2. SOLIRIS [Suspect]
     Dosage: 900 MG, Q2W
     Route: 042
     Dates: start: 20070530
  3. SOLIRIS [Suspect]
     Dosage: 900 MG, Q12D
     Route: 042
  4. TYLENOL (CAPLET) [Concomitant]
     Dosage: 650 MG, PRN, Q6H
     Route: 048
  5. ALBUTEROL [Concomitant]
     Dosage: 2 PUFFS, PRN, QID
  6. CLONAZEPAM [Concomitant]
     Dosage: 1 MG, QD
     Route: 048
  7. FRAGMIN                            /01708302/ [Concomitant]
     Dosage: 12500 IU, QD
     Route: 058
  8. BENADRYL [Concomitant]
     Dosage: 50 MG, PRN, Q6H
     Route: 048
  9. DRONABINOL [Concomitant]
     Dosage: 2.5 MG, BID
     Route: 048
  10. CYMBALTA [Concomitant]
     Dosage: 60 MG, QD
     Route: 048
  11. FLONASE [Concomitant]
     Dosage: UNK
     Route: 045
  12. ADVAIR DISKUS 100/50 [Concomitant]
     Dosage: 1 PUFF, BID
  13. FOLIC ACID [Concomitant]
     Dosage: 1 MG, QD
     Route: 048
  14. METHADONE HYDROCHLORIDE [Concomitant]
     Dosage: 10 MG, TID, Q8H
     Route: 048
  15. NYSTATIN [Concomitant]
     Dosage: 100,000 UNITS/ML, 5 ML, QID
     Route: 048
  16. PRILOSEC [Concomitant]
     Dosage: 20 MG, QD
     Route: 048
  17. POTASSIUM CHLORIDE [Concomitant]
     Dosage: 20 MEQ, QD
     Route: 048
  18. COMPAZINE                          /00013302/ [Concomitant]
     Indication: NAUSEA
     Dosage: 10 MG, PRN, Q4H
     Route: 048
  19. SEROQUEL [Concomitant]
     Dosage: 50 MG, PRN, Q4H
     Route: 048
  20. SENNA-MINT WAF [Concomitant]
     Dosage: 2 TABS, PRN, BID
     Route: 048
  21. SPIRIVA [Concomitant]
     Dosage: UNK
  22. ALBUTEROL [Concomitant]
     Dosage: 2.5 MG, PRN

REACTIONS (2)
  - JOINT SWELLING [None]
  - JOINT WARMTH [None]
